FAERS Safety Report 7959143-8 (Version None)
Quarter: 2011Q4

REPORT INFORMATION
  Report Type: 
  Country: None (occurrence: None)
  Receive Date: 20111206
  Receipt Date: 20111124
  Transmission Date: 20120403
  Serious: Yes (Hospitalization)
  Sender: FDA-Public Use
  Company Number: IT-ELI_LILLY_AND_COMPANY-IT201111007743

PATIENT
  Sex: Male

DRUGS (2)
  1. PROZAC [Suspect]
     Indication: DEPRESSION
     Dosage: 30 MG, QD
     Route: 048
     Dates: start: 20110709, end: 20110715
  2. RISPERIDONE [Concomitant]
     Indication: DEPRESSION
     Dosage: 1 MG, QD
     Dates: start: 20110501, end: 20110715

REACTIONS (3)
  - URINARY INCONTINENCE [None]
  - BRADYPHRENIA [None]
  - ASTHENIA [None]
